FAERS Safety Report 24257251 (Version 1)
Quarter: 2024Q3

REPORT INFORMATION
  Report Type: Spontaneous
  Country: US (occurrence: US)
  Receive Date: 20240828
  Receipt Date: 20240828
  Transmission Date: 20241017
  Serious: No
  Sender: PHARMAESSENTIA
  Company Number: US-PHARMAESSENTIA CORPORATION-US-2024-PEC-004275

PATIENT
  Sex: Male

DRUGS (1)
  1. BESREMI [Suspect]
     Active Substance: ROPEGINTERFERON ALFA-2B-NJFT
     Indication: Polycythaemia vera
     Route: 065

REACTIONS (1)
  - Ill-defined disorder [Not Recovered/Not Resolved]
